FAERS Safety Report 7602655-7 (Version None)
Quarter: 2011Q3

REPORT INFORMATION
  Report Type: 
  Country: None (occurrence: None)
  Receive Date: 20110712
  Receipt Date: 20110629
  Transmission Date: 20111222
  Serious: Yes (Hospitalization)
  Sender: FDA-Public Use
  Company Number: CA-ELI_LILLY_AND_COMPANY-CA201106008524

PATIENT
  Sex: Female

DRUGS (24)
  1. ZYPREXA [Suspect]
     Dosage: 10 MG, UNKNOWN
  2. CELEXA [Concomitant]
  3. LITHIUM CARBONATE [Concomitant]
  4. C.E.S. [Concomitant]
  5. ZYPREXA [Suspect]
     Dosage: 20 MG, QD
  6. BENZTROPINE MESYLATE [Concomitant]
  7. DIVALPROEX SODIUM [Concomitant]
  8. ALTACE [Concomitant]
  9. TEMAZEPAM [Concomitant]
  10. NITRAZADON [Concomitant]
  11. LORAZEPAM [Concomitant]
  12. ATORVASTATIN [Concomitant]
  13. ADVAIR DISKUS 100/50 [Concomitant]
  14. ASPIRIN [Concomitant]
  15. RISPERDAL [Concomitant]
  16. TRIHEXYPHEN [Concomitant]
  17. FLURAZEPAM [Concomitant]
  18. CLONAZEPAM [Concomitant]
  19. SPIRIVA [Concomitant]
  20. PERINDOPRIL ERBUMINE [Concomitant]
  21. ZYPREXA [Suspect]
     Dosage: 5 MG, QD
  22. ZYPREXA [Suspect]
     Dosage: 2.5 MG, QD
  23. ZYPREXA ZYDIS [Suspect]
     Dosage: 5 MG, QD
  24. PERIDOL [Concomitant]

REACTIONS (2)
  - DIABETIC COMPLICATION [None]
  - DIABETES MELLITUS [None]
